FAERS Safety Report 7669532-7 (Version None)
Quarter: 2011Q3

REPORT INFORMATION
  Report Type: 
  Country: None (occurrence: None)
  Receive Date: 20110808
  Receipt Date: 20110802
  Transmission Date: 20111222
  Serious: Yes (Other)
  Sender: FDA-Public Use
  Company Number: FR-MERCK-1108FRA00014

PATIENT
  Age: 82 Year
  Sex: Male
  Weight: 77 kg

DRUGS (12)
  1. JANUVIA [Suspect]
     Indication: TYPE 2 DIABETES MELLITUS
     Route: 048
     Dates: start: 20110514, end: 20110519
  2. FUROSEMIDE [Concomitant]
     Route: 048
  3. ALLOPURINOL [Concomitant]
     Route: 065
  4. ASPIRIN LYSINE [Concomitant]
     Route: 065
  5. RABEPRAZOLE SODIUM [Concomitant]
     Route: 065
  6. ACETAMINOPHEN [Concomitant]
     Route: 065
  7. CELIPROLOL HYDROCHLORIDE [Concomitant]
     Route: 065
  8. LERCANIDIPINE [Concomitant]
     Route: 065
  9. ROSUVASTATIN CALCIUM [Concomitant]
     Route: 065
  10. GLIMEPIRIDE [Concomitant]
     Route: 065
  11. IRBESARTAN [Concomitant]
     Route: 065
  12. TETRAZEPAM [Concomitant]
     Route: 065

REACTIONS (3)
  - TREMOR [None]
  - BALANCE DISORDER [None]
  - HEADACHE [None]
